FAERS Safety Report 6681107-5 (Version None)
Quarter: 2010Q2

REPORT INFORMATION
  Report Type: 
  Country: None (occurrence: None)
  Receive Date: 20100412
  Receipt Date: 20100402
  Transmission Date: 20101027
  Serious: Yes (Other)
  Sender: FDA-Public Use
  Company Number: SPV1-2010-00519

PATIENT
  Age: 69 Year
  Sex: Male

DRUGS (10)
  1. FOSRENOL [Suspect]
     Indication: HYPERPHOSPHATAEMIA
     Dosage: 750 MG TOTAL DAILY DOSE, ORAL
     Route: 048
     Dates: start: 20091209, end: 20100303
  2. BAYASPIRIN(ACETYLSALICYLIC ACID) UNKNOWN [Suspect]
     Indication: MYOCARDIAL ISCHAEMIA
     Dosage: 200 MG, TOTAL DAILY DOSE, ORAL,  100 MG TOTAL DAILY DOSE, ORAL
     Route: 048
     Dates: end: 20091001
  3. BAYASPIRIN(ACETYLSALICYLIC ACID) UNKNOWN [Suspect]
     Indication: MYOCARDIAL ISCHAEMIA
     Dosage: 200 MG, TOTAL DAILY DOSE, ORAL,  100 MG TOTAL DAILY DOSE, ORAL
     Route: 048
     Dates: start: 20091001
  4. PLAVIX [Suspect]
     Indication: CEREBRAL INFARCTION
     Dosage: 75 MG TOTAL DAILY DOSE, ORAL
     Route: 048
     Dates: start: 20090907
  5. NIZATIDINE [Concomitant]
  6. LANSOPRAZOLE [Concomitant]
  7. CARVEDILOL [Concomitant]
  8. LIPITOR [Concomitant]
  9. SIGMART (NICORANDIL) [Concomitant]
  10. MIGLITOL (MIGLITOL) [Concomitant]

REACTIONS (14)
  - ANAEMIA [None]
  - BLOOD UREA INCREASED [None]
  - CEREBRAL INFARCTION [None]
  - ENDOCARDITIS BACTERIAL [None]
  - GASTRITIS EROSIVE [None]
  - HAEMODIALYSIS [None]
  - IMMUNE SYSTEM DISORDER [None]
  - INFLAMMATION [None]
  - MALAISE [None]
  - MENTAL DISORDER [None]
  - PLATELET COUNT DECREASED [None]
  - STAPHYLOCOCCAL INFECTION [None]
  - UPPER GASTROINTESTINAL HAEMORRHAGE [None]
  - WRONG TECHNIQUE IN DRUG USAGE PROCESS [None]
